FAERS Safety Report 6128580-9 (Version None)
Quarter: 2009Q1

REPORT INFORMATION
  Report Type: 
  Country: None (occurrence: None)
  Receive Date: 20090323
  Receipt Date: 20090318
  Transmission Date: 20090719
  Serious: Yes (Hospitalization, Other)
  Sender: FDA-Public Use
  Company Number: US-B.I. PHARMACEUTICALS,INC./RIDGEFIELD-2009-BP-03387BP

PATIENT
  Sex: Male

DRUGS (9)
  1. SPIRIVA [Suspect]
     Indication: EMPHYSEMA
     Dosage: 18MCG
     Route: 055
     Dates: start: 20070101
  2. ADVAIR HFA [Concomitant]
     Indication: EMPHYSEMA
  3. COMBIVENT [Concomitant]
     Indication: EMPHYSEMA
     Route: 055
  4. GLIPIZIDE [Concomitant]
     Indication: DIABETES MELLITUS
     Dosage: 5MG
  5. COUMADIN [Concomitant]
     Indication: ANGIOPATHY
     Dosage: 5MG
  6. ALBUTEROL [Concomitant]
     Indication: EMPHYSEMA
  7. LISINOPRIL [Concomitant]
     Indication: HYPERTENSION
  8. PULMICORT-100 [Concomitant]
     Indication: EMPHYSEMA
  9. OXYGEN [Concomitant]
     Indication: EMPHYSEMA

REACTIONS (6)
  - BACTERIA SPUTUM IDENTIFIED [None]
  - BASAL CELL CARCINOMA [None]
  - DYSPNOEA [None]
  - PSEUDOMONAS INFECTION [None]
  - PULMONARY CONGESTION [None]
  - SKIN CANCER [None]
